FAERS Safety Report 6191557-1 (Version None)
Quarter: 2009Q2

REPORT INFORMATION
  Report Type: 
  Country: None (occurrence: None)
  Receive Date: 20090515
  Receipt Date: 20090512
  Transmission Date: 20091009
  Serious: Yes (Hospitalization)
  Sender: FDA-Public Use
  Company Number: GB-BAYER-200911499BNE

PATIENT
  Age: 39 Year
  Sex: Male
  Weight: 66 kg

DRUGS (10)
  1. SORAFENIB [Suspect]
     Indication: THYROID CANCER
     Dosage: UNIT DOSE: 400 MG
     Dates: start: 20071106, end: 20071213
  2. SORAFENIB [Suspect]
     Dates: start: 20071213, end: 20080422
  3. SORAFENIB [Suspect]
     Dates: start: 20080522, end: 20080528
  4. SORAFENIB [Suspect]
     Dates: start: 20080625, end: 20080805
  5. SORAFENIB [Suspect]
     Dates: start: 20081007, end: 20081223
  6. SORAFENIB [Suspect]
     Dates: start: 20081223, end: 20090428
  7. SORAFENIB [Suspect]
     Dates: start: 20080805
  8. SORAFENIB [Suspect]
     Dates: start: 20080604, end: 20080606
  9. ALFACALCIDOL [Concomitant]
     Dosage: MISSED 5 DAILY DOSES OF 4MCG
     Dates: end: 20090401
  10. LEVOTHYROXINE SODIUM [Concomitant]
     Indication: HORMONE REPLACEMENT THERAPY
     Route: 048
     Dates: start: 20090430

REACTIONS (1)
  - HYPOCALCAEMIA [None]
